FAERS Safety Report 19254470 (Version 1)
Quarter: 2021Q2

REPORT INFORMATION
  Report Type: Spontaneous
  Country: HU (occurrence: HU)
  Receive Date: 20210513
  Receipt Date: 20210513
  Transmission Date: 20210717
  Serious: Yes (Other)
  Sender: FDA-Public Use
  Company Number: HU-JNJFOC-20210508647

PATIENT
  Sex: Male

DRUGS (11)
  1. STAYVEER [Suspect]
     Active Substance: BOSENTAN
     Route: 065
     Dates: start: 2015
  2. STAYVEER [Suspect]
     Active Substance: BOSENTAN
     Route: 065
     Dates: start: 2018
  3. STAYVEER [Suspect]
     Active Substance: BOSENTAN
     Indication: PULMONARY HYPERTENSION
     Route: 065
     Dates: start: 201406
  4. SILDENAFIL. [Concomitant]
     Active Substance: SILDENAFIL
     Indication: PULMONARY HYPERTENSION
     Route: 065
  5. STAYVEER [Suspect]
     Active Substance: BOSENTAN
     Route: 065
     Dates: start: 2016
  6. STAYVEER [Suspect]
     Active Substance: BOSENTAN
     Route: 065
     Dates: start: 2017
  7. STAYVEER [Suspect]
     Active Substance: BOSENTAN
     Route: 065
     Dates: start: 201401
  8. FUROSEMIDE. [Concomitant]
     Active Substance: FUROSEMIDE
     Indication: CARDIOVASCULAR INSUFFICIENCY
     Route: 065
  9. FUROSEMIDE. [Concomitant]
     Active Substance: FUROSEMIDE
     Indication: RENAL FAILURE
  10. VEROSPIRON [Concomitant]
     Active Substance: SPIRONOLACTONE
     Indication: RENAL FAILURE
     Route: 065
  11. STAYVEER [Suspect]
     Active Substance: BOSENTAN
     Route: 065
     Dates: start: 2019

REACTIONS (7)
  - Respiratory failure [Unknown]
  - Off label use [Unknown]
  - Myopia [Not Recovered/Not Resolved]
  - Psychomotor hyperactivity [Not Recovered/Not Resolved]
  - Abnormal behaviour [Not Recovered/Not Resolved]
  - Strabismus [Unknown]
  - Product use issue [Unknown]
